FAERS Safety Report 23002733 (Version 2)
Quarter: 2024Q3

REPORT INFORMATION
  Report Type: Report from Study
  Country: JP (occurrence: JP)
  Receive Date: 20230928
  Receipt Date: 20240910
  Transmission Date: 20241016
  Serious: Yes (Death, Hospitalization, Other)
  Sender: BRISTOL MYERS SQUIBB
  Company Number: JP-BRISTOL-MYERS SQUIBB COMPANY-2023-137695

PATIENT
  Age: 66 Year
  Sex: Female
  Weight: 36.3 kg

DRUGS (1)
  1. ABECMA [Suspect]
     Active Substance: IDECABTAGENE VICLEUCEL
     Indication: Plasma cell myeloma refractory
     Dosage: ONCE, FULL DOSE(4.3X10^8)
     Route: 041
     Dates: start: 20220817, end: 20220817

REACTIONS (2)
  - Post procedural cellulitis [Fatal]
  - Plasma cell myeloma [Fatal]
